FAERS Safety Report 21417164 (Version 9)
Quarter: 2022Q4

REPORT INFORMATION
  Report Type: Report from Study
  Country: IT (occurrence: None)
  Receive Date: 20221006
  Receipt Date: 20221209
  Transmission Date: 20230112
  Serious: Yes (Hospitalization)
  Sender: FDA-Public Use
  Company Number: IT-Eisai Medical Research-EC-2022-125170

PATIENT
  Age: 50 Year
  Sex: Female
  Weight: 62 kg

DRUGS (14)
  1. LENVATINIB [Suspect]
     Active Substance: LENVATINIB
     Indication: Endometrial cancer
     Dosage: STARTING DOSE: 20 MG, FLUCTUATED DOSAGE
     Route: 048
     Dates: start: 20210319, end: 20220810
  2. LENVATINIB [Suspect]
     Active Substance: LENVATINIB
     Route: 048
     Dates: start: 20220811
  3. PEMBROLIZUMAB [Suspect]
     Active Substance: PEMBROLIZUMAB
     Indication: Endometrial cancer
     Route: 041
     Dates: start: 20210319, end: 20220721
  4. PEMBROLIZUMAB [Suspect]
     Active Substance: PEMBROLIZUMAB
     Route: 041
     Dates: start: 20220923
  5. IRBESARTAN [Concomitant]
     Active Substance: IRBESARTAN
     Dates: start: 20210508
  6. NEBIVOLOL HYDROCHLORIDE [Concomitant]
     Active Substance: NEBIVOLOL HYDROCHLORIDE
     Dates: start: 20210508
  7. OMEGA-3 FATTY ACIDS [Concomitant]
     Active Substance: OMEGA-3 FATTY ACIDS
     Dates: start: 20210507
  8. PREDNISONE [Concomitant]
     Active Substance: PREDNISONE
     Dates: start: 20210512
  9. IMODIUM [Concomitant]
     Active Substance: LOPERAMIDE HYDROCHLORIDE
     Dates: start: 20220717, end: 20220718
  10. NALOXONE HYDROCHLORIDE\OXYCODONE HYDROCHLORIDE [Concomitant]
     Active Substance: NALOXONE HYDROCHLORIDE\OXYCODONE HYDROCHLORIDE
     Dates: start: 20220531
  11. TACHIPIRINA [Concomitant]
     Active Substance: ACETAMINOPHEN
     Dates: start: 20220224
  12. LYRICA [Concomitant]
     Active Substance: PREGABALIN
     Dates: start: 20220512
  13. NORMAST [Concomitant]
     Dates: start: 20220720
  14. LEVOTHYROXINE SODIUM [Concomitant]
     Active Substance: LEVOTHYROXINE SODIUM
     Dates: start: 20210609

REACTIONS (1)
  - Diarrhoea [Recovered/Resolved]

NARRATIVE: CASE EVENT DATE: 20220723
